FAERS Safety Report 9126461 (Version 1)
Quarter: 2013Q1

REPORT INFORMATION
  Report Type: Spontaneous
  Country: GB (occurrence: GB)
  Receive Date: 20130117
  Receipt Date: 20130117
  Transmission Date: 20140127
  Serious: Yes (Other)
  Sender: FDA-Public Use
  Company Number: GB-MYLANLABS-2013S1000464

PATIENT
  Age: 68 Year
  Sex: Male

DRUGS (9)
  1. ONDANSETRON [Suspect]
     Indication: NAUSEA
     Route: 048
     Dates: start: 20120618, end: 20120618
  2. CYCLIZINE [Concomitant]
     Indication: NAUSEA
     Route: 048
     Dates: start: 201205
  3. DEXAMETHASONE [Concomitant]
     Indication: METASTASES TO CENTRAL NERVOUS SYSTEM
     Route: 048
     Dates: start: 201205
  4. DICLOFENAC [Concomitant]
     Indication: PAIN
     Route: 048
     Dates: start: 201205
  5. MOVICOL [Concomitant]
     Indication: CONSTIPATION
     Route: 048
     Dates: start: 201205
  6. MST CONTINUS [Concomitant]
     Indication: PAIN
     Route: 048
     Dates: start: 201205
  7. OMEPRAZOLE [Concomitant]
     Indication: GASTRIC DISORDER
     Route: 048
     Dates: start: 201205
  8. ORAMORPH [Concomitant]
     Indication: PAIN
     Route: 048
     Dates: start: 201205
  9. SENNA [Concomitant]
     Indication: CONSTIPATION
     Route: 048
     Dates: start: 201205

REACTIONS (4)
  - Agitation [Recovered/Resolved]
  - Restlessness [Recovered/Resolved]
  - Muscle spasms [Recovered/Resolved]
  - Tremor [Recovered/Resolved]
